FAERS Safety Report 18460939 (Version 3)
Quarter: 2020Q4

REPORT INFORMATION
  Report Type: Spontaneous
  Country: DE (occurrence: DE)
  Receive Date: 20201104
  Receipt Date: 20201224
  Transmission Date: 20210114
  Serious: Yes (Hospitalization, Other)
  Sender: FDA-Public Use
  Company Number: DE-AUROBINDO-AUR-APL-2020-045152

PATIENT
  Sex: Female

DRUGS (6)
  1. PALLADON [Interacting]
     Active Substance: HYDROMORPHONE
     Indication: BACK PAIN
     Dosage: 2 MILLIGRAM, ONCE A DAY
     Route: 065
  2. PALLADON [Interacting]
     Active Substance: HYDROMORPHONE
     Dosage: 16 MILLIGRAM, TWO TIMES A DAY
     Route: 065
  3. NORTASE [Concomitant]
     Indication: PRODUCT USED FOR UNKNOWN INDICATION
     Dosage: UNK
     Route: 065
  4. GABAPENTIN. [Suspect]
     Active Substance: GABAPENTIN
     Indication: PRODUCT USED FOR UNKNOWN INDICATION
     Dosage: UNK
     Route: 065
  5. PALLADON [Interacting]
     Active Substance: HYDROMORPHONE
     Dosage: 8 MILLIGRAM, 3 TIMES A DAY
     Route: 065
  6. PALLADON [Interacting]
     Active Substance: HYDROMORPHONE
     Dosage: 2 MILLIGRAM, ONCE A DAY
     Route: 065
     Dates: start: 202010, end: 202011

REACTIONS (7)
  - Product dose omission issue [Unknown]
  - Pancreatic enzyme abnormality [Unknown]
  - Hospitalisation [Not Recovered/Not Resolved]
  - Labelled drug-drug interaction issue [Unknown]
  - Diarrhoea [Not Recovered/Not Resolved]
  - Drug withdrawal syndrome [Unknown]
  - Feeling cold [Unknown]
